FAERS Safety Report 8742015 (Version 3)
Quarter: 2013Q3

REPORT INFORMATION
  Report Type: Report from Study
  Country: FR (occurrence: FR)
  Receive Date: 20120824
  Receipt Date: 20130813
  Transmission Date: 20140515
  Serious: Yes (Other)
  Sender: FDA-Public Use
  Company Number: FR-PFIZER INC-2012204531

PATIENT
  Age: 63 Year
  Sex: Male
  Weight: 84 kg

DRUGS (6)
  1. CRIZOTINIB [Suspect]
     Indication: LUNG ADENOCARCINOMA
     Dosage: 250 MG, 2X/DAY
     Route: 048
     Dates: start: 20120713, end: 20120807
  2. OMEPRAZOLE [Concomitant]
     Indication: PROPHYLAXIS AGAINST GASTROINTESTINAL ULCER
     Dosage: 20 MG, 1X/DAY
     Route: 048
     Dates: start: 201204
  3. SOLUPRED [Concomitant]
     Indication: BRAIN OEDEMA
     Dosage: 20 MG, 1X/DAY
     Route: 048
     Dates: start: 201204
  4. KEPPRA [Concomitant]
     Indication: EPILEPSY
     Dosage: 500 MG, 2X/DAY
     Route: 048
     Dates: start: 201109
  5. PRAVADUAL [Concomitant]
     Indication: MYOCARDIAL ISCHAEMIA
     Dosage: 1 DF, 1X/DAY
     Dates: start: 20120713
  6. KENZEN [Concomitant]
     Dosage: 8 MG, 1X/DAY

REACTIONS (1)
  - Hepatitis [Not Recovered/Not Resolved]
